FAERS Safety Report 5061947-9 (Version None)
Quarter: 2006Q3

REPORT INFORMATION
  Report Type: 
  Country: None (occurrence: None)
  Receive Date: 20060726
  Receipt Date: 20060714
  Transmission Date: 20061208
  Serious: Yes (Other)
  Sender: FDA-Public Use
  Company Number: CH-BRISTOL-MYERS SQUIBB COMPANY-13443320

PATIENT

DRUGS (1)
  1. DAPOTUM [Suspect]
     Route: 048

REACTIONS (1)
  - PANCREATITIS ACUTE [None]
